FAERS Safety Report 8894599 (Version 3)
Quarter: 2013Q1

REPORT INFORMATION
  Report Type: Spontaneous
  Country: US (occurrence: US)
  Receive Date: 20121108
  Receipt Date: 20130123
  Transmission Date: 20140127
  Serious: Yes (Hospitalization)
  Sender: FDA-Public Use
  Company Number: US-009507513-1211USA001179

PATIENT
  Sex: Male

DRUGS (3)
  1. VICTRELIS [Suspect]
     Indication: HEPATITIS C
     Dosage: 800 MG, TID
     Route: 048
     Dates: start: 2012, end: 2012
  2. PEGASYS [Suspect]
     Dosage: UNK
     Dates: start: 2012
  3. RIBASPHERE [Suspect]
     Dosage: UNK
     Dates: start: 2012

REACTIONS (2)
  - Leg amputation [Unknown]
  - Skin discolouration [Unknown]
